FAERS Safety Report 12046806 (Version 2)
Quarter: 2016Q1

REPORT INFORMATION
  Report Type: Spontaneous
  Country: CA (occurrence: CA)
  Receive Date: 20160209
  Receipt Date: 20160209
  Transmission Date: 20160526
  Serious: Yes (Death, Hospitalization, Other)
  Sender: FDA-Public Use
  Company Number: CA-JNJFOC-20160121862

PATIENT

DRUGS (2)
  1. ACETAMINOPHEN. [Suspect]
     Active Substance: ACETAMINOPHEN
     Indication: PRODUCT USED FOR UNKNOWN INDICATION
     Route: 065
  2. ACETAMINOPHEN. [Suspect]
     Active Substance: ACETAMINOPHEN
     Route: 065

REACTIONS (16)
  - Cardiac arrest [Fatal]
  - Blood creatinine increased [Fatal]
  - Electrolyte imbalance [Fatal]
  - Seizure [Fatal]
  - Rhabdomyolysis [Fatal]
  - Toxicity to various agents [Fatal]
  - Respiratory failure [Fatal]
  - Anuria [Fatal]
  - Acidosis [Fatal]
  - Hypotension [Fatal]
  - Coma [Fatal]
  - Pulmonary oedema [Fatal]
  - Suicidal ideation [Fatal]
  - Respiratory arrest [Fatal]
  - Renal failure [Fatal]
  - Oliguria [Fatal]
